FAERS Safety Report 16176812 (Version 7)
Quarter: 2020Q3

REPORT INFORMATION
  Report Type: Report from Study
  Country: US (occurrence: US)
  Receive Date: 20190409
  Receipt Date: 20200723
  Transmission Date: 20201102
  Serious: Yes (Hospitalization)
  Sender: FDA-Public Use
  Company Number: US-ACTELION-A-US2019-186856

PATIENT
  Age: 71 Year
  Sex: Female
  Weight: 48.53 kg

DRUGS (7)
  1. OPSUMIT [Suspect]
     Active Substance: MACITENTAN
     Indication: PULMONARY ARTERIAL HYPERTENSION
     Dosage: 10 MG, QD
     Route: 048
  2. REMODULIN [Concomitant]
     Active Substance: TREPROSTINIL
  3. TREPROSTINIL. [Concomitant]
     Active Substance: TREPROSTINIL
  4. ADEMPAS [Suspect]
     Active Substance: RIOCIGUAT
     Indication: PRODUCT USED FOR UNKNOWN INDICATION
     Dosage: 2 MG
     Route: 065
  5. ADEMPAS [Suspect]
     Active Substance: RIOCIGUAT
     Dosage: UNK
     Route: 065
  6. OPSUMIT [Suspect]
     Active Substance: MACITENTAN
     Dosage: 10 MG, QD
     Route: 048
  7. WARFARIN [Concomitant]
     Active Substance: WARFARIN

REACTIONS (14)
  - Tympanoplasty [Unknown]
  - Weight decreased [Unknown]
  - Rales [Unknown]
  - Decreased appetite [Unknown]
  - Gastrooesophageal reflux disease [Recovering/Resolving]
  - Post procedural complication [Unknown]
  - Hypotension [Unknown]
  - Abdominal discomfort [Recovering/Resolving]
  - Dizziness [Not Recovered/Not Resolved]
  - Gastric polyps [Unknown]
  - Dyspnoea exertional [Not Recovered/Not Resolved]
  - Blood pressure decreased [Unknown]
  - Retching [Unknown]
  - Fatigue [Recovered/Resolved]

NARRATIVE: CASE EVENT DATE: 201903
